FAERS Safety Report 10579390 (Version 2)
Quarter: 2014Q4

REPORT INFORMATION
  Report Type: Report from Study
  Country: US (occurrence: FR)
  Receive Date: 20141112
  Receipt Date: 20141112
  Transmission Date: 20150529
  Serious: Yes (Death)
  Sender: FDA-Public Use
  Company Number: FR-CELGENE-056-C4047-14022571

PATIENT
  Age: 58 Year
  Sex: Female
  Weight: 46 kg

DRUGS (3)
  1. KARDEGIC [Concomitant]
     Active Substance: ASPIRIN LYSINE
     Indication: THROMBOSIS PROPHYLAXIS
     Route: 065
  2. CC-4047 [Suspect]
     Active Substance: POMALIDOMIDE
     Indication: PLASMA CELL MYELOMA
     Dosage: 4 MILLIGRAM
     Route: 048
     Dates: start: 20130213, end: 20130813
  3. DEXAMETHASONE. [Concomitant]
     Active Substance: DEXAMETHASONE
     Indication: PLASMA CELL MYELOMA
     Route: 065
     Dates: end: 20130813

REACTIONS (7)
  - Coma [Not Recovered/Not Resolved]
  - Neutrophil count decreased [Not Recovered/Not Resolved]
  - Creatinine renal clearance decreased [Not Recovered/Not Resolved]
  - Sepsis [Fatal]
  - Neutropenia [Not Recovered/Not Resolved]
  - Platelet count decreased [Not Recovered/Not Resolved]
  - Haemoglobin decreased [Not Recovered/Not Resolved]

NARRATIVE: CASE EVENT DATE: 20130701
